FAERS Safety Report 7871211-8 (Version None)
Quarter: 2011Q4

REPORT INFORMATION
  Report Type: 
  Country: None (occurrence: None)
  Receive Date: 20111003
  Receipt Date: 20110215
  Transmission Date: 20120403
  Serious: Yes (Other)
  Sender: FDA-Public Use
  Company Number: 267501USA

PATIENT
  Sex: Male

DRUGS (1)
  1. FLUOXETINE [Suspect]
     Dosage: (20 MG)

REACTIONS (6)
  - URTICARIA [None]
  - EYE IRRITATION [None]
  - DYSPNOEA [None]
  - PHARYNGEAL OEDEMA [None]
  - OEDEMA [None]
  - RASH [None]
